FAERS Safety Report 9536103 (Version 1)
Quarter: 2013Q2

REPORT INFORMATION
  Report Type: Spontaneous
  Country: US (occurrence: None)
  Receive Date: 20130507
  Receipt Date: 20130507
  Transmission Date: 20140414
  Serious: No
  Sender: FDA-Public Use
  Company Number: PHEH2013US001028

PATIENT
  Age: 66 Year
  Sex: Male
  Weight: 103.1 kg

DRUGS (7)
  1. AFINITOR (RAD) TABLET, 10MG [Suspect]
     Indication: RENAL CELL CARCINOMA
     Route: 048
     Dates: start: 20121122
  2. AMLODIPINE (AMLODIPINE) TABLET [Concomitant]
  3. PRAVASTATIN (PRAVASTATIN) [Concomitant]
  4. PRAVASTATIN (PRAVASTATIN) [Concomitant]
  5. LISINOPRIL HCTZ (HYDROCHLOROTHIAZIDE, LISINOPRIL) [Concomitant]
  6. MORPHINE (MORPHINE) [Concomitant]
  7. MORPHINE (MORPHINE) [Concomitant]

REACTIONS (2)
  - Pain in extremity [None]
  - Arthralgia [None]
